FAERS Safety Report 5414887-7 (Version None)
Quarter: 2007Q3

REPORT INFORMATION
  Report Type: 
  Country: None (occurrence: None)
  Receive Date: 20070813
  Receipt Date: 20070802
  Transmission Date: 20080115
  Serious: Yes (Hospitalization)
  Sender: FDA-Public Use
  Company Number: 2007SP004237

PATIENT
  Age: 51 Year
  Sex: Male

DRUGS (4)
  1. VIRAFERONPEG [Suspect]
     Indication: CHRONIC HEPATITIS
     Dates: end: 20060726
  2. REBETOL [Suspect]
     Indication: CHRONIC HEPATITIS
     Dates: end: 20060726
  3. PEGASYS [Suspect]
     Dosage: 180 MCG;QW;
     Dates: start: 20060726
  4. COPEGUS [Suspect]
     Dosage: 1200 MG;QD;
     Dates: start: 20060726

REACTIONS (2)
  - ALCOHOL PROBLEM [None]
  - NO THERAPEUTIC RESPONSE [None]
